FAERS Safety Report 18011306 (Version 1)
Quarter: 2020Q3

REPORT INFORMATION
  Report Type: Spontaneous
  Country: CA (occurrence: CA)
  Receive Date: 20200712
  Receipt Date: 20200712
  Transmission Date: 20201103
  Serious: Yes (Life-Threatening, Hospitalization)
  Sender: FDA-Public Use
  Company Number: CA-TEVA-2020-CA-1798138

PATIENT
  Age: 15 Year
  Sex: Female
  Weight: 43 kg

DRUGS (3)
  1. CYCLOPHOSPHAMIDE. [Suspect]
     Active Substance: CYCLOPHOSPHAMIDE
  2. VINCRISTINE SULFATE INJECTION USP [Suspect]
     Active Substance: VINCRISTINE SULFATE
  3. CISPLATIN INJECTION [Suspect]
     Active Substance: CISPLATIN
     Dosage: SOLUTION INTRAVENOUS
     Route: 065

REACTIONS (1)
  - Febrile neutropenia [Recovered/Resolved]
